FAERS Safety Report 8928699 (Version 1)
Quarter: 2012Q4

REPORT INFORMATION
  Report Type: 
  Country: US (occurrence: US)
  Receive Date: 20121128
  Receipt Date: 20121128
  Transmission Date: 20130627
  Serious: No
  Sender: FDA-Public Use
  Company Number: US-PFIZER INC-2012293908

PATIENT
  Age: 71 Year
  Sex: Male
  Weight: 95.24 kg

DRUGS (1)
  1. CELEBREX [Suspect]
     Indication: SPINAL OSTEOARTHRITIS
     Dosage: 200 mg, daily
     Dates: end: 201211

REACTIONS (2)
  - Rash macular [Unknown]
  - Pain [Unknown]
